FAERS Safety Report 4696396-6 (Version None)
Quarter: 2005Q2

REPORT INFORMATION
  Report Type: 
  Country: None (occurrence: None)
  Receive Date: 20050620
  Receipt Date: 20050606
  Transmission Date: 20051028
  Serious: Yes (Other)
  Sender: FDA-Public Use
  Company Number: HQWYE304807JUN05

PATIENT
  Age: 54 Year
  Sex: Male
  Weight: 87 kg

DRUGS (10)
  1. RAPAMUNE (SIROLIMIS, TABLET) [Suspect]
     Indication: PROPHYLAXIS AGAINST TRANSPLANT REJECTION
     Dosage: 5 MG 1X PER 1 DAY; ORAL
     Route: 048
     Dates: start: 20041212
  2. PREDNISONE [Suspect]
     Indication: PROPHYLAXIS AGAINST TRANSPLANT REJECTION
     Dosage: UNSPECIFIED; ORAL
     Route: 048
  3. TACROLIMUS (TACROLIMUS, ) [Suspect]
     Indication: PROPHYLAXIS AGAINST TRANSPLANT REJECTION
     Dosage: UNSPECIFIED; ORAL
     Route: 048
     Dates: end: 20050411
  4. ZENAPAX [Suspect]
     Indication: PROPHYLAXIS AGAINST TRANSPLANT REJECTION
     Dosage: UNSPECIFIED, ORAL
     Route: 048
  5. VERAPAMIL [Concomitant]
  6. TOPROL-XL [Concomitant]
  7. HUMULIN (INSULIN HUMAN) [Concomitant]
  8. HUMALOG [Concomitant]
  9. ZOCOR [Concomitant]
  10. CARDIZEM [Concomitant]

REACTIONS (4)
  - BLOOD CREATININE INCREASED [None]
  - BLOOD UREA INCREASED [None]
  - DRUG INEFFECTIVE [None]
  - KIDNEY TRANSPLANT REJECTION [None]
